FAERS Safety Report 22112798 (Version 1)
Quarter: 2023Q1

REPORT INFORMATION
  Report Type: Spontaneous
  Country: US (occurrence: US)
  Receive Date: 20230320
  Receipt Date: 20230320
  Transmission Date: 20230418
  Serious: Yes (Hospitalization)
  Sender: FDA-Public Use
  Company Number: US-STRIDES ARCOLAB LIMITED-2023SP003994

PATIENT
  Age: 4 Year
  Sex: Male

DRUGS (6)
  1. DEXAMETHASONE [Suspect]
     Active Substance: DEXAMETHASONE
     Indication: Acute lymphocytic leukaemia
     Dosage: UNK, INDUCTION CHEMOTHERAPY, THERAPY CONTINUED
     Route: 065
  2. METHOTREXATE [Suspect]
     Active Substance: METHOTREXATE
     Indication: Acute lymphocytic leukaemia
     Dosage: UNK, INDUCTION CHEMOTHERAPY, THERAPY CONTINUED
     Route: 065
  3. PEGASPARGASE [Suspect]
     Active Substance: PEGASPARGASE
     Indication: Acute lymphocytic leukaemia
     Dosage: UNK, INDUCTION CHEMOTHERAPY, THERAPY CONTINUED
     Route: 065
  4. VINCRISTINE [Suspect]
     Active Substance: VINCRISTINE
     Indication: Acute lymphocytic leukaemia
     Dosage: UNK, INDUCTION CHEMOTHERAPY, THERAPY CONTINUED
     Route: 065
  5. CYTARABINE [Suspect]
     Active Substance: CYTARABINE
     Indication: Acute lymphocytic leukaemia
     Dosage: UNK, INDUCTION CHEMOTHERAPY, THERAPY CONTINUED
     Route: 037
  6. VANCOMYCIN [Suspect]
     Active Substance: VANCOMYCIN
     Indication: Pancreatitis acute
     Dosage: UNK
     Route: 042

REACTIONS (5)
  - Atypical haemolytic uraemic syndrome [Unknown]
  - Tachycardia [Unknown]
  - Respiratory distress [Unknown]
  - Pleural effusion [Unknown]
  - Pancreatitis acute [Recovered/Resolved]
